FAERS Safety Report 9339332 (Version 1)
Quarter: 2013Q2

REPORT INFORMATION
  Report Type: Spontaneous
  Country: US (occurrence: US)
  Receive Date: 20130610
  Receipt Date: 20130610
  Transmission Date: 20140414
  Serious: No
  Sender: FDA-Public Use
  Company Number: US-ASTRAZENECA-2013SE38718

PATIENT
  Sex: Female

DRUGS (2)
  1. SEROQUEL XR [Suspect]
     Indication: BIPOLAR DISORDER
     Route: 048
     Dates: start: 20121130
  2. OXYBUTIN [Interacting]
     Indication: URINARY INCONTINENCE
     Route: 065

REACTIONS (2)
  - Drug interaction [Unknown]
  - Sedation [Unknown]
